FAERS Safety Report 15630205 (Version 1)
Quarter: 2018Q4

REPORT INFORMATION
  Report Type: Spontaneous
  Country: US (occurrence: US)
  Receive Date: 20181116
  Receipt Date: 20181116
  Transmission Date: 20190205
  Serious: Yes (Other)
  Sender: FDA-Public Use
  Company Number: None

PATIENT
  Age: 26 Year
  Sex: Female
  Weight: 84.82 kg

DRUGS (1)
  1. LAMOTRIGINE 150MG TAB [Suspect]
     Active Substance: LAMOTRIGINE
     Indication: BIPOLAR II DISORDER
     Dosage: 20SEP2015
     Route: 048
     Dates: start: 20180715

REACTIONS (3)
  - Drug ineffective [None]
  - Therapeutic response changed [None]
  - Product substitution issue [None]

NARRATIVE: CASE EVENT DATE: 20180813
